FAERS Safety Report 9170692 (Version 1)
Quarter: 2013Q1

REPORT INFORMATION
  Report Type: Spontaneous
  Country: GB (occurrence: None)
  Receive Date: 20130312
  Receipt Date: 20130312
  Transmission Date: 20140127
  Serious: No
  Sender: FDA-Public Use
  Company Number: A1014782A

PATIENT
  Sex: Female
  Weight: 2.9 kg

DRUGS (2)
  1. LEVETIRACETAM (LEVETIRACETAM) [Suspect]
     Route: 064
  2. LAMOTRIGINE (LAMOTRIGINE) [Suspect]

REACTIONS (4)
  - Maternal drugs affecting foetus [None]
  - Ventricular septal defect [None]
  - Cleft lip and palate [None]
  - Congenital central nervous system anomaly [None]
